FAERS Safety Report 8101796-8 (Version None)
Quarter: 2012Q1

REPORT INFORMATION
  Report Type: 
  Country: None (occurrence: None)
  Receive Date: 20120131
  Receipt Date: 20120125
  Transmission Date: 20120608
  Serious: Yes (Hospitalization)
  Sender: FDA-Public Use
  Company Number: PHHY2012IT006993

PATIENT
  Sex: Female

DRUGS (2)
  1. OXCARBAZEPINE [Suspect]
     Dosage: 10 DF, UNK
     Route: 048
     Dates: start: 20111117, end: 20111117
  2. BROMAZEPAM [Concomitant]

REACTIONS (4)
  - SOPOR [None]
  - SELF-INJURIOUS IDEATION [None]
  - SLOW SPEECH [None]
  - INTENTIONAL OVERDOSE [None]
